FAERS Safety Report 8560007-X (Version None)
Quarter: 2012Q3

REPORT INFORMATION
  Report Type: 
  Country: None (occurrence: None)
  Receive Date: 20120802
  Receipt Date: 20120730
  Transmission Date: 20120928
  Serious: Yes (Hospitalization, Other)
  Sender: FDA-Public Use
  Company Number: US-PFIZER INC-2012150404

PATIENT
  Sex: Male
  Weight: 77.1 kg

DRUGS (2)
  1. SUTENT [Suspect]
     Dosage: 50 MG, 1X/DAY
     Route: 048
     Dates: start: 20120601, end: 20120628
  2. SUTENT [Suspect]
     Indication: RENAL CANCER
     Dosage: 25 MG, 1X/DAY
     Route: 048
     Dates: start: 20120501, end: 20120601

REACTIONS (15)
  - DEHYDRATION [None]
  - SWELLING [None]
  - STOMATITIS [None]
  - STRESS [None]
  - APHAGIA [None]
  - DYSPNOEA [None]
  - HEPATIC FAILURE [None]
  - PAIN IN EXTREMITY [None]
  - NAUSEA [None]
  - DIARRHOEA [None]
  - NUTRITIONAL CONDITION ABNORMAL [None]
  - OCULAR ICTERUS [None]
  - YELLOW SKIN [None]
  - ABDOMINAL PAIN [None]
  - EPISTAXIS [None]
